FAERS Safety Report 10995395 (Version 2)
Quarter: 2015Q2

REPORT INFORMATION
  Report Type: Report from Study
  Country: BR (occurrence: BR)
  Receive Date: 20150407
  Receipt Date: 20150508
  Transmission Date: 20150821
  Serious: Yes (Other)
  Sender: FDA-Public Use
  Company Number: PHHY2015BR039067

PATIENT
  Sex: Female
  Weight: 70 kg

DRUGS (7)
  1. DIOVAN HCT [Suspect]
     Active Substance: HYDROCHLOROTHIAZIDE\VALSARTAN
     Indication: CARDIAC DISORDER
     Dosage: 2 DF, (160/12.5 MG) QD
     Route: 048
  2. SOMALIUM [Concomitant]
     Indication: INSOMNIA
     Dosage: 2 DF, QD (6 MG) MANY YEARS
     Route: 048
  3. TILEX [Concomitant]
     Indication: RHEUMATIC DISORDER
     Dosage: 1 DF, QD (MANY YEARS)
     Route: 048
  4. HIGROTON [Concomitant]
     Active Substance: CHLORTHALIDONE
     Indication: HYPERTENSION
     Dosage: 1 DF, 50 MG, QD (MANY YEARS)
     Route: 048
  5. DIOVAN HCT [Suspect]
     Active Substance: HYDROCHLOROTHIAZIDE\VALSARTAN
     Dosage: 2 DF, (160/12.5 MG), QD
     Route: 048
  6. SELOZOK [Concomitant]
     Active Substance: METOPROLOL SUCCINATE
     Indication: HYPERTENSION
     Dosage: 1 DF, 50 MG, QD (4 YEARS)
     Route: 048
  7. DIOVAN HCT [Suspect]
     Active Substance: HYDROCHLOROTHIAZIDE\VALSARTAN
     Dosage: 0.5 DF (320/12.5 MG), UNK
     Route: 048

REACTIONS (5)
  - Cerebrovascular accident [Recovered/Resolved]
  - Off label use [Unknown]
  - Drug intolerance [Recovering/Resolving]
  - Tinnitus [Not Recovered/Not Resolved]
  - Palpitations [Recovering/Resolving]

NARRATIVE: CASE EVENT DATE: 201311
